FAERS Safety Report 12938088 (Version 1)
Quarter: 2016Q4

REPORT INFORMATION
  Report Type: Report from Study
  Country: CO (occurrence: CO)
  Receive Date: 20161114
  Receipt Date: 20161114
  Transmission Date: 20170207
  Serious: Yes (Hospitalization)
  Sender: FDA-Public Use
  Company Number: CO-JNJFOC-20160810685

PATIENT
  Age: 27 Year
  Sex: Male
  Weight: 73 kg

DRUGS (2)
  1. RISPERDAL CONSTA [Suspect]
     Active Substance: RISPERIDONE
     Indication: BIPOLAR DISORDER
     Route: 030
     Dates: start: 20160810
  2. RISPERDAL CONSTA [Suspect]
     Active Substance: RISPERIDONE
     Indication: BIPOLAR DISORDER
     Route: 030
     Dates: start: 20160503, end: 20160719

REACTIONS (4)
  - Dependence [Unknown]
  - Psychotic disorder [Recovered/Resolved]
  - Substance abuse [Unknown]
  - Bipolar disorder [Recovered/Resolved]

NARRATIVE: CASE EVENT DATE: 20160729
